FAERS Safety Report 9518082 (Version 1)
Quarter: 2013Q1

REPORT INFORMATION
  Report Type: Spontaneous
  Country: US (occurrence: None)
  Receive Date: 20130305
  Receipt Date: 20130305
  Transmission Date: 20140127
  Serious: Yes (Other)
  Sender: FDA-Public Use
  Company Number: 163-21880-12082537

PATIENT
  Sex: 0

DRUGS (2)
  1. REVLIMID [Suspect]
     Indication: THYROID CANCER
     Dosage: 15 MG, 21 IN 21 D, PO
     Route: 048
  2. CEDIRANIB [Suspect]
     Indication: THYROID CANCER
     Dosage: 20 MG, 1 IN 1 D, PO
     Route: 048

REACTIONS (5)
  - Neutropenia [None]
  - Mucosal inflammation [None]
  - Fatigue [None]
  - Decreased appetite [None]
  - Nausea [None]
